FAERS Safety Report 21167323 (Version 2)
Quarter: 2023Q1

REPORT INFORMATION
  Report Type: Spontaneous
  Country: US (occurrence: US)
  Receive Date: 20220803
  Receipt Date: 20230116
  Transmission Date: 20230417
  Serious: Yes (Other)
  Sender: FDA-Public Use
  Company Number: US-PERRIGO-22US010304

PATIENT
  Age: 57 Year
  Sex: Female
  Weight: 83.9 kg

DRUGS (4)
  1. TUSSIN SEVERE MULTI SYMPTOM COUGH COLD PLUS FLU CF MAX [Suspect]
     Active Substance: ACETAMINOPHEN\DEXTROMETHORPHAN HYDROBROMIDE\GUAIFENESIN\PHENYLEPHRINE HYDROCHLORIDE
     Indication: Cough
     Dosage: 20 ML, SINGLE
     Route: 048
     Dates: start: 20220128, end: 20220128
  2. ALCOHOL [Suspect]
     Active Substance: ALCOHOL
     Indication: Product used for unknown indication
     Dosage: 3 GLASSES OF WINE, SINGLE
     Route: 048
     Dates: start: 20220128, end: 20220128
  3. LORAZEPAM [Concomitant]
     Active Substance: LORAZEPAM
     Indication: Anxiety
     Dosage: 0.5 MG, QHS PRN
     Route: 048
     Dates: start: 2020
  4. LORAZEPAM [Concomitant]
     Active Substance: LORAZEPAM
     Indication: Insomnia

REACTIONS (8)
  - Loss of consciousness [Recovered/Resolved]
  - Haemorrhage intracranial [Recovered/Resolved]
  - Hand fracture [Recovered/Resolved]
  - Dizziness [Recovered/Resolved]
  - Fall [Recovered/Resolved]
  - Haematoma [Not Recovered/Not Resolved]
  - Post-traumatic neck syndrome [Recovered/Resolved]
  - Pain in extremity [Not Recovered/Not Resolved]

NARRATIVE: CASE EVENT DATE: 20220128
